FAERS Safety Report 7609065-7 (Version None)
Quarter: 2011Q3

REPORT INFORMATION
  Report Type: 
  Country: None (occurrence: None)
  Receive Date: 20110714
  Receipt Date: 20110710
  Transmission Date: 20111222
  Serious: Yes (Death, Life-Threatening)
  Sender: FDA-Public Use
  Company Number: CELGENEUS-087-21880-10090645

PATIENT
  Sex: Female

DRUGS (4)
  1. REVLIMID [Suspect]
     Indication: MULTIPLE MYELOMA
     Dosage: 15 MILLIGRAM
     Route: 048
     Dates: start: 20100819, end: 20100831
  2. DECADRON [Concomitant]
     Indication: MULTIPLE MYELOMA
     Dosage: 40 MILLIGRAM
     Route: 041
     Dates: start: 20100819, end: 20100905
  3. OXYCONTIN [Concomitant]
     Indication: SPINAL COMPRESSION FRACTURE
     Dosage: 20 MILLIGRAM
     Route: 048
     Dates: start: 20100615, end: 20100906
  4. OMEPRAZOLE [Concomitant]
     Indication: PROPHYLAXIS
     Dosage: 10 MILLIGRAM
     Route: 048
     Dates: start: 20100819, end: 20100906

REACTIONS (4)
  - INFECTION [None]
  - MEDIASTINAL HAEMORRHAGE [None]
  - BLOOD COUNT ABNORMAL [None]
  - THROMBOCYTOPENIA [None]
